FAERS Safety Report 5373665-8 (Version None)
Quarter: 2007Q2

REPORT INFORMATION
  Report Type: 
  Country: None (occurrence: None)
  Receive Date: 20070615
  Receipt Date: 20060515
  Transmission Date: 20071010
  Serious: Yes (Other)
  Sender: FDA-Public Use
  Company Number: 200518417US

PATIENT
  Age: 82 Year
  Sex: Male

DRUGS (11)
  1. LANTUS [Suspect]
     Indication: DIABETES MELLITUS NON-INSULIN-DEPENDENT
     Dosage: 6 U
  2. OPTICLIK [Concomitant]
     Indication: DIABETES MELLITUS NON-INSULIN-DEPENDENT
  3. NOVOLOG [Concomitant]
  4. DISOPYRAMIDE [Concomitant]
  5. COZAAR [Concomitant]
  6. COREG [Concomitant]
  7. ATORVASTATIN CALCIUM (LIPITOR) [Concomitant]
  8. ASPIRIN [Concomitant]
  9. FUROSEMIE (LASIX /00032601/) [Concomitant]
  10. POTASSIUM CHLORIDE (KLOR-CON) [Concomitant]
  11. AMBIEN [Concomitant]

REACTIONS (3)
  - HYPERGLYCAEMIA [None]
  - HYPOGLYCAEMIA [None]
  - NO ADVERSE EFFECT [None]
